FAERS Safety Report 8308917-2 (Version None)
Quarter: 2012Q2

REPORT INFORMATION
  Report Type: 
  Country: None (occurrence: None)
  Receive Date: 20120424
  Receipt Date: 20120420
  Transmission Date: 20120825
  Serious: Yes (Death, Other)
  Sender: FDA-Public Use
  Company Number: CHPA2012BR009143

PATIENT
  Sex: Male

DRUGS (1)
  1. ACETAMINOPHEN, ASPIRIN AND CAFFEINE [Suspect]
     Dosage: UNK, UNK

REACTIONS (3)
  - RIB FRACTURE [None]
  - FALL [None]
  - HEAD INJURY [None]
